FAERS Safety Report 5092517-4 (Version None)
Quarter: 2006Q3

REPORT INFORMATION
  Report Type: 
  Country: None (occurrence: None)
  Receive Date: 20060830
  Receipt Date: 20060619
  Transmission Date: 20061208
  Serious: Yes (Hospitalization)
  Sender: FDA-Public Use
  Company Number: FR-BRISTOL-MYERS SQUIBB COMPANY-13418249

PATIENT
  Age: 52 Year
  Sex: Male
  Weight: 58 kg

DRUGS (20)
  1. SUSTIVA [Suspect]
     Dosage: SUSTIVA WAS STOPPED IN MAY, 2006, FOR ANOTHER REASON, AND NOT DUE TO THE EVENT.
     Dates: start: 20050420, end: 20060514
  2. COMBIVIR [Suspect]
     Dates: start: 20050420, end: 20050613
  3. VIREAD [Suspect]
     Dates: start: 20050613
  4. ALDACTONE [Suspect]
     Dosage: ALDACTONE STOPPED AFTER LIVER GRAFT IN MAR-2006
  5. PROGRAF [Suspect]
     Dosage: DOSAGE INCREASED TO 5.5 MG TWICE DAILY
     Dates: start: 20050315, end: 20060514
  6. ACTONEL [Concomitant]
  7. MOPRAL [Concomitant]
  8. MOTILIUM [Concomitant]
  9. AMARYL [Concomitant]
  10. DURAGESIC-100 [Concomitant]
  11. MORPHINE SULFATE [Concomitant]
  12. TARDYFERON [Concomitant]
  13. NELFINAVIR [Concomitant]
     Dates: start: 20050101
  14. CORTANCYL [Concomitant]
     Dates: start: 20050301
  15. BACTRIM [Concomitant]
     Dates: start: 20050301
  16. FOLINORAL [Concomitant]
     Dates: start: 20050301
  17. KIVEXA [Concomitant]
  18. URSOLVAN [Concomitant]
  19. COLECALCIFEROL [Concomitant]
  20. ACUPAN [Concomitant]

REACTIONS (6)
  - ALANINE AMINOTRANSFERASE INCREASED [None]
  - ANAEMIA [None]
  - DIABETES MELLITUS [None]
  - GAMMA-GLUTAMYLTRANSFERASE INCREASED [None]
  - GYNAECOMASTIA [None]
  - LEUKOPENIA [None]
